FAERS Safety Report 9331583 (Version 3)
Quarter: 2014Q3

REPORT INFORMATION
  Report Type: Spontaneous
  Country: US (occurrence: None)
  Receive Date: 20130603
  Receipt Date: 20140730
  Transmission Date: 20150326
  Serious: Yes (Death)
  Sender: FDA-Public Use
  Company Number: 2013US001684

PATIENT
  Age: 34 Year
  Sex: Male
  Weight: 78.3 kg

DRUGS (23)
  1. PONATINIB (AP24534) TABLET [Suspect]
     Active Substance: PONATINIB
     Indication: ACUTE LYMPHOCYTIC LEUKAEMIA
     Route: 048
     Dates: start: 20130227, end: 20130415
  2. METOPROLOL TARTRATE. [Concomitant]
     Active Substance: METOPROLOL TARTRATE
  3. PEPCID [Concomitant]
     Active Substance: FAMOTIDINE
  4. MORPHINE [Concomitant]
     Active Substance: MORPHINE
  5. HEPARIN [Concomitant]
     Active Substance: HEPARIN SODIUM
  6. NOXAFIL [Concomitant]
     Active Substance: POSACONAZOLE
  7. SODIUM CHLORIDE. [Concomitant]
     Active Substance: SODIUM CHLORIDE
  8. LIPITOR [Concomitant]
     Active Substance: ATORVASTATIN CALCIUM
  9. VORICONAZOLE. [Concomitant]
     Active Substance: VORICONAZOLE
  10. PONATINIB (AP24534) TABLET [Suspect]
     Active Substance: PONATINIB
     Route: 048
     Dates: start: 20130227, end: 20130415
  11. ULTRAM [Concomitant]
     Active Substance: TRAMADOL HYDROCHLORIDE
  12. ASPIRIN. [Concomitant]
     Active Substance: ASPIRIN
  13. VALTREX [Concomitant]
     Active Substance: VALACYCLOVIR HYDROCHLORIDE
  14. CIPRO [Concomitant]
     Active Substance: CIPROFLOXACIN HYDROCHLORIDE
  15. CARAFATE [Concomitant]
     Active Substance: SUCRALFATE
  16. ZOSYN [Concomitant]
     Active Substance: PIPERACILLIN SODIUM\TAZOBACTAM SODIUM
  17. ZYVOX [Concomitant]
     Active Substance: LINEZOLID
  18. BACLOFEN. [Concomitant]
     Active Substance: BACLOFEN
  19. LOVENOX [Concomitant]
     Active Substance: ENOXAPARIN SODIUM
  20. NEURONTIN [Concomitant]
     Active Substance: GABAPENTIN
  21. PLAVIX [Concomitant]
     Active Substance: CLOPIDOGREL BISULFATE
  22. AUGMENTIN [Concomitant]
     Active Substance: AMOXICILLIN\CLAVULANATE POTASSIUM
  23. ZOFRAN [Concomitant]
     Active Substance: ONDANSETRON HYDROCHLORIDE

REACTIONS (33)
  - Pyrexia [None]
  - Hypotension [None]
  - Drug dose omission [None]
  - Lower respiratory tract infection fungal [None]
  - Tricuspid valve incompetence [None]
  - Pulmonary embolism [None]
  - Pleural effusion [None]
  - Haemoglobin decreased [None]
  - Haematocrit decreased [None]
  - Chest pain [None]
  - Abdominal pain [None]
  - Septic shock [None]
  - Lower respiratory tract infection viral [None]
  - Right ventricular dysfunction [None]
  - Right atrial dilatation [None]
  - Nausea [None]
  - Haemodynamic instability [None]
  - Acute myocardial infarction [None]
  - Pulmonary mass [None]
  - Right ventricular failure [None]
  - Blood creatinine increased [None]
  - Platelet count decreased [None]
  - Dilatation ventricular [None]
  - Mucosal inflammation [None]
  - Lobar pneumonia [None]
  - Neutrophil percentage increased [None]
  - Blood albumin decreased [None]
  - Vasospasm [None]
  - Vomiting [None]
  - White blood cell count increased [None]
  - Lower respiratory tract infection bacterial [None]
  - Tachycardia [None]
  - Arrhythmia [None]

NARRATIVE: CASE EVENT DATE: 20130517
